FAERS Safety Report 6916286-5 (Version None)
Quarter: 2010Q3

REPORT INFORMATION
  Report Type: 
  Country: None (occurrence: None)
  Receive Date: 20100810
  Receipt Date: 20100729
  Transmission Date: 20110219
  Serious: Yes (Other)
  Sender: FDA-Public Use
  Company Number: JP-PFIZER INC-2010090711

PATIENT
  Age: 85 Year
  Sex: Female

DRUGS (2)
  1. LYRICA [Suspect]
     Indication: POST HERPETIC NEURALGIA
     Dosage: 150 MG/DAY
     Route: 048
     Dates: start: 20100101
  2. CODEINE PHOSPHATE [Suspect]
     Dosage: UNK
     Route: 065

REACTIONS (2)
  - DEHYDRATION [None]
  - DIZZINESS [None]
